FAERS Safety Report 24142645 (Version 1)
Quarter: 2024Q3

REPORT INFORMATION
  Report Type: Spontaneous
  Country: US (occurrence: US)
  Receive Date: 20240726
  Receipt Date: 20240726
  Transmission Date: 20241017
  Serious: Yes (Hospitalization, Other)
  Sender: ELI LILLY AND CO
  Company Number: US-ELI_LILLY_AND_COMPANY-US202407011050

PATIENT
  Age: 54 Year
  Sex: Female

DRUGS (4)
  1. TRULICITY [Suspect]
     Active Substance: DULAGLUTIDE
     Indication: Type 1 diabetes mellitus
     Dosage: 1.5 MG, UNKNOWN
     Route: 065
     Dates: end: 202309
  2. TRULICITY [Suspect]
     Active Substance: DULAGLUTIDE
     Indication: Insulin resistance
  3. HUMALOG [Suspect]
     Active Substance: INSULIN LISPRO
     Indication: Type 1 diabetes mellitus
     Dosage: UNK UNK, UNKNOWN
     Route: 065
     Dates: start: 2023
  4. TRESIBA [Concomitant]
     Active Substance: INSULIN DEGLUDEC
     Indication: Type 1 diabetes mellitus
     Dosage: 35 U, DAILY 30 TO 35 UNITS

REACTIONS (9)
  - Myocardial infarction [Unknown]
  - Fall [Recovering/Resolving]
  - Femur fracture [Recovering/Resolving]
  - Myocardial injury [Unknown]
  - Cardiac dysfunction [Not Recovered/Not Resolved]
  - Hypotension [Unknown]
  - Drug ineffective [Unknown]
  - Blood glucose increased [Not Recovered/Not Resolved]
  - Glycosylated haemoglobin increased [Not Recovered/Not Resolved]

NARRATIVE: CASE EVENT DATE: 20231201
